FAERS Safety Report 11771743 (Version 1)
Quarter: 2015Q4

REPORT INFORMATION
  Report Type: Spontaneous
  Country: US (occurrence: None)
  Receive Date: 20151123
  Receipt Date: 20151123
  Transmission Date: 20160304
  Serious: Yes (Other)
  Sender: FDA-Public Use
  Company Number: None

PATIENT
  Age: 48 Year
  Sex: Female
  Weight: 68.04 kg

DRUGS (16)
  1. SYNTHROID [Concomitant]
     Active Substance: LEVOTHYROXINE SODIUM
  2. PLAQUENIL [Concomitant]
     Active Substance: HYDROXYCHLOROQUINE SULFATE
  3. CLARITIN [Concomitant]
     Active Substance: LORATADINE
  4. BENTYL [Concomitant]
     Active Substance: DICYCLOMINE HYDROCHLORIDE
  5. AMITIZA [Concomitant]
     Active Substance: LUBIPROSTONE
  6. VITAMIN D3 [Concomitant]
     Active Substance: CHOLECALCIFEROL
  7. DILTIAZEM [Concomitant]
     Active Substance: DILTIAZEM
  8. SINGULAIR [Concomitant]
     Active Substance: MONTELUKAST SODIUM
  9. LUNESTA [Concomitant]
     Active Substance: ESZOPICLONE
  10. ADVAIR HFA [Concomitant]
     Active Substance: FLUTICASONE PROPIONATE\SALMETEROL XINAFOATE
  11. OMEGA 3 [Concomitant]
     Active Substance: OMEGA-3 FATTY ACIDS
  12. VENTOLIN HFA [Concomitant]
     Active Substance: ALBUTEROL SULFATE
  13. B12 INJECTION [Concomitant]
  14. TOPAMAX [Suspect]
     Active Substance: TOPIRAMATE
     Indication: MIGRAINE
     Route: 048
  15. MISOPROSTOL. [Concomitant]
     Active Substance: MISOPROSTOL
  16. PROBIOTIC [Concomitant]
     Active Substance: PROBIOTICS NOS

REACTIONS (2)
  - Nephrolithiasis [None]
  - Urinary tract infection [None]

NARRATIVE: CASE EVENT DATE: 20151109
